FAERS Safety Report 6726584-6 (Version None)
Quarter: 2010Q2

REPORT INFORMATION
  Report Type: 
  Country: None (occurrence: None)
  Receive Date: 20100514
  Receipt Date: 20100504
  Transmission Date: 20101027
  Serious: Yes (Other)
  Sender: FDA-Public Use
  Company Number: AU-ELI_LILLY_AND_COMPANY-AU201005000355

PATIENT
  Age: 57 Year
  Sex: Female

DRUGS (4)
  1. CYMBALTA [Suspect]
     Indication: DEPRESSED MOOD
     Dosage: 90 MG, UNKNOWN
     Route: 065
  2. OLANZAPINE [Concomitant]
     Dosage: 10 MG, UNKNOWN
     Route: 065
  3. MIRTAZAPINE [Concomitant]
     Dosage: 30 MG, UNKNOWN
     Route: 065
  4. ANAESTHETICS [Concomitant]
     Dosage: UNK, UNKNOWN
     Route: 065

REACTIONS (2)
  - COLITIS ISCHAEMIC [None]
  - OFF LABEL USE [None]
